FAERS Safety Report 22364578 (Version 1)
Quarter: 2023Q2

REPORT INFORMATION
  Report Type: Spontaneous
  Country: US (occurrence: US)
  Receive Date: 20230525
  Receipt Date: 20230525
  Transmission Date: 20230722
  Serious: No
  Sender: FDA-Public Use
  Company Number: US-drreddys-SPO/USA/23/0164671

PATIENT
  Age: 22 Year

DRUGS (2)
  1. ZENATANE [Suspect]
     Active Substance: ISOTRETINOIN
     Indication: Product used for unknown indication
     Dosage: RMA ISSUE DATE :17 JUNE 2022 01:01:36 PM, 16 DECEMBER 2022 01:20:51 PM, 25 JANUARY 2023 10:20:38 AM,
  2. ZENATANE [Suspect]
     Active Substance: ISOTRETINOIN
     Dosage: RMA ISSUE DATE :24 FEBRUARY 2023 08:02:06 AM AND 05 APRIL 2023 08:13:00 AM

REACTIONS (2)
  - Dermal cyst [Unknown]
  - Condition aggravated [Unknown]
